FAERS Safety Report 7204672-8 (Version None)
Quarter: 2010Q4

REPORT INFORMATION
  Report Type: 
  Country: None (occurrence: None)
  Receive Date: 20101220
  Receipt Date: 20101209
  Transmission Date: 20110411
  Serious: Yes (Death)
  Sender: FDA-Public Use
  Company Number: 2010JP007297

PATIENT

DRUGS (4)
  1. TACROLIMUS [Suspect]
     Indication: PROPHYLAXIS AGAINST TRANSPLANT REJECTION
  2. MYCOPHENOLATE MOFETIL [Suspect]
     Indication: PROPHYLAXIS AGAINST TRANSPLANT REJECTION
  3. CORTICOSTEOIDS () FORMULATION UNKNOWN [Suspect]
     Indication: PROPHYLAXIS AGAINST TRANSPLANT REJECTION
  4. PRAZIQUANTEL (PRAZIQUANTEL) [Concomitant]

REACTIONS (1)
  - HEPATIC NEOPLASM MALIGNANT RECURRENT [None]
